FAERS Safety Report 16741876 (Version 3)
Quarter: 2020Q1

REPORT INFORMATION
  Report Type: Report from Study
  Country: DE (occurrence: DE)
  Receive Date: 20190826
  Receipt Date: 20200205
  Transmission Date: 20200409
  Serious: Yes (Other)
  Sender: FDA-Public Use
  Company Number: PHHY2019DE198419

PATIENT
  Age: 58 Year
  Sex: Female

DRUGS (3)
  1. COSENTYX [Suspect]
     Active Substance: SECUKINUMAB
     Dosage: 300 VIALS (ONLY USED IN CLINICAL TRIALS)
     Route: 065
     Dates: start: 20151223, end: 20160317
  2. COSENTYX [Suspect]
     Active Substance: SECUKINUMAB
     Indication: PSORIASIS
     Dosage: 300 MG, PRE-FILLED PEN
     Route: 065
     Dates: start: 20151126, end: 20151223
  3. COSENTYX [Suspect]
     Active Substance: SECUKINUMAB
     Dosage: 300 MG, PRE-FILLED PEN
     Route: 065
     Dates: start: 20160317

REACTIONS (3)
  - Tendon rupture [Not Recovered/Not Resolved]
  - Pyoderma [Recovered/Resolved]
  - Cystitis [Recovered/Resolved]

NARRATIVE: CASE EVENT DATE: 20190117
